FAERS Safety Report 24200048 (Version 1)
Quarter: 2024Q3

REPORT INFORMATION
  Report Type: Report from Study
  Country: US (occurrence: US)
  Receive Date: 20240812
  Receipt Date: 20240812
  Transmission Date: 20241017
  Serious: Yes (Other)
  Sender: AMGEN
  Company Number: US-AMGEN-USASL2024049909

PATIENT
  Age: 50 Year
  Sex: Female

DRUGS (1)
  1. ARANESP [Suspect]
     Active Substance: DARBEPOETIN ALFA
     Indication: Product used for unknown indication
     Dosage: 200 MICROGRAM, 0.4 ML  (500 MCG/ML)
     Route: 058

REACTIONS (5)
  - Lupus nephritis [Unknown]
  - Leukopenia [Unknown]
  - Malabsorption [Unknown]
  - Iron deficiency anaemia [Unknown]
  - Off label use [Unknown]
